FAERS Safety Report 25320273 (Version 1)
Quarter: 2025Q2

REPORT INFORMATION
  Report Type: Spontaneous
  Country: FR (occurrence: FR)
  Receive Date: 20250515
  Receipt Date: 20250515
  Transmission Date: 20250717
  Serious: Yes (Hospitalization)
  Sender: MYLAN
  Company Number: None

PATIENT
  Age: 79 Year
  Sex: Female
  Weight: 70 kg

DRUGS (20)
  1. GABAPENTIN [Suspect]
     Active Substance: GABAPENTIN
     Indication: Product used for unknown indication
  2. GABAPENTIN [Suspect]
     Active Substance: GABAPENTIN
     Route: 048
  3. GABAPENTIN [Suspect]
     Active Substance: GABAPENTIN
     Route: 048
  4. GABAPENTIN [Suspect]
     Active Substance: GABAPENTIN
  5. LANSOPRAZOLE [Suspect]
     Active Substance: LANSOPRAZOLE
     Indication: Product used for unknown indication
  6. LANSOPRAZOLE [Suspect]
     Active Substance: LANSOPRAZOLE
     Route: 048
  7. LANSOPRAZOLE [Suspect]
     Active Substance: LANSOPRAZOLE
     Route: 048
  8. LANSOPRAZOLE [Suspect]
     Active Substance: LANSOPRAZOLE
  9. OXAZEPAM [Suspect]
     Active Substance: OXAZEPAM
     Indication: Product used for unknown indication
  10. OXAZEPAM [Suspect]
     Active Substance: OXAZEPAM
     Route: 048
  11. OXAZEPAM [Suspect]
     Active Substance: OXAZEPAM
     Route: 048
  12. OXAZEPAM [Suspect]
     Active Substance: OXAZEPAM
  13. LOVENOX [Suspect]
     Active Substance: ENOXAPARIN SODIUM
     Indication: Product used for unknown indication
  14. LOVENOX [Suspect]
     Active Substance: ENOXAPARIN SODIUM
     Route: 058
  15. LOVENOX [Suspect]
     Active Substance: ENOXAPARIN SODIUM
     Route: 058
  16. LOVENOX [Suspect]
     Active Substance: ENOXAPARIN SODIUM
  17. RACECADOTRIL [Concomitant]
     Active Substance: RACECADOTRIL
     Indication: Product used for unknown indication
  18. RACECADOTRIL [Concomitant]
     Active Substance: RACECADOTRIL
     Route: 048
  19. RACECADOTRIL [Concomitant]
     Active Substance: RACECADOTRIL
     Route: 048
  20. RACECADOTRIL [Concomitant]
     Active Substance: RACECADOTRIL

REACTIONS (1)
  - Neutropenia [Not Recovered/Not Resolved]

NARRATIVE: CASE EVENT DATE: 20250411
